FAERS Safety Report 6838540-8 (Version None)
Quarter: 2010Q3

REPORT INFORMATION
  Report Type: 
  Country: None (occurrence: None)
  Receive Date: 20100713
  Receipt Date: 20070614
  Transmission Date: 20110219
  Serious: No
  Sender: FDA-Public Use
  Company Number: US-PFIZER INC-2007051160

PATIENT
  Sex: Female
  Weight: 104.3 kg

DRUGS (5)
  1. CHANTIX [Suspect]
     Indication: SMOKING CESSATION THERAPY
     Dates: start: 20070501
  2. IBUPROFEN [Concomitant]
  3. OMEPRAZOLE [Concomitant]
  4. MONTELUKAST SODIUM [Concomitant]
  5. OXITRIPTAN [Concomitant]

REACTIONS (2)
  - FUNGAL INFECTION [None]
  - PRURITUS [None]
